FAERS Safety Report 9191187 (Version 1)
Quarter: 2013Q1

REPORT INFORMATION
  Report Type: Spontaneous
  Country: US (occurrence: US)
  Receive Date: 20130326
  Receipt Date: 20130326
  Transmission Date: 20140127
  Serious: Yes (Other)
  Sender: FDA-Public Use
  Company Number: US-CELGENEUS-163-21660-13032994

PATIENT
  Sex: 0

DRUGS (4)
  1. ABRAXANE [Suspect]
     Indication: BREAST CANCER
     Dosage: 100 MILLIGRAM/SQ. METER
     Route: 065
  2. CARBOPLATIN [Suspect]
     Indication: BREAST CANCER
     Route: 065
  3. DOXORUBICIN [Suspect]
     Indication: BREAST CANCER
     Route: 065
  4. BEVACIZUMAB [Suspect]
     Indication: BREAST CANCER
     Dosage: 15 MILLIGRAM/KILOGRAM
     Route: 065

REACTIONS (9)
  - Gastrointestinal haemorrhage [Unknown]
  - Neutropenia [Unknown]
  - Thrombocytopenia [Unknown]
  - Anaemia [Unknown]
  - Nausea [Unknown]
  - Dehydration [Unknown]
  - Infection [Unknown]
  - Febrile neutropenia [Unknown]
  - Hypertension [Unknown]
